FAERS Safety Report 15309260 (Version 1)
Quarter: 2018Q3

REPORT INFORMATION
  Report Type: Spontaneous
  Country: US (occurrence: US)
  Receive Date: 20180811
  Receipt Date: 20180811
  Transmission Date: 20181010
  Serious: No
  Sender: FDA-Public Use
  Company Number: None

PATIENT
  Age: 71 Year
  Sex: Male
  Weight: 96.75 kg

DRUGS (5)
  1. LIPITOR [Concomitant]
     Active Substance: ATORVASTATIN CALCIUM
  2. ASPIRIN. [Concomitant]
     Active Substance: ASPIRIN
  3. PILOCARPINE 2% EYE DROPS; PILOCARPINE HYDROCHLORIDE OPHTHALMIC SOLUTI [Suspect]
     Active Substance: PILOCARPINE HYDROCHLORIDE
     Indication: GLAUCOMA
     Dosage: ?          QUANTITY:1 DROP(S);?
     Route: 047
     Dates: start: 20180810, end: 20180811
  4. TAMSULOSIN [Concomitant]
     Active Substance: TAMSULOSIN
  5. SYNTHROID [Concomitant]
     Active Substance: LEVOTHYROXINE SODIUM

REACTIONS (5)
  - Wheezing [None]
  - Headache [None]
  - Instillation site pain [None]
  - Nausea [None]
  - Eye pain [None]

NARRATIVE: CASE EVENT DATE: 20180811
